FAERS Safety Report 6582146-5 (Version None)
Quarter: 2010Q1

REPORT INFORMATION
  Report Type: 
  Country: None (occurrence: None)
  Receive Date: 20100212
  Receipt Date: 20100212
  Transmission Date: 20100710
  Serious: Yes (Life-Threatening, Disabling, Other)
  Sender: FDA-Public Use
  Company Number: None

PATIENT
  Age: 60 Year
  Sex: Female
  Weight: 86.1834 kg

DRUGS (2)
  1. MYDRIACYL [Suspect]
     Indication: GLAUCOMA
     Dosage: 1 DROP EACH EYE 1 TIME TOPICAL
     Route: 061
     Dates: start: 20091221
  2. NEVANAC [Suspect]
     Indication: EYE INFLAMMATION
     Dosage: 1 DROP EACH EYE 3X DAILY TOPICAL
     Route: 061
     Dates: start: 20091223, end: 20091226

REACTIONS (4)
  - BLINDNESS [None]
  - EYE IRRITATION [None]
  - EYE PAIN [None]
  - HEADACHE [None]
